FAERS Safety Report 5063817-9 (Version None)
Quarter: 2006Q3

REPORT INFORMATION
  Report Type: 
  Country: None (occurrence: None)
  Receive Date: 20060726
  Receipt Date: 20060726
  Transmission Date: 20061208
  Serious: Yes (Hospitalization)
  Sender: FDA-Public Use
  Company Number: None

PATIENT
  Sex: Female
  Weight: 71.5 kg

DRUGS (2)
  1. ERBITUX [Suspect]
     Indication: NEOPLASM MALIGNANT
     Dosage: 493 MG IV /EVERY WEEK
     Route: 042
     Dates: start: 20060613, end: 20060718
  2. ALIMTA [Suspect]
     Dosage: 354 MG IV /EVERY 3 WEEKS
     Route: 042
     Dates: start: 20060620, end: 20060711

REACTIONS (4)
  - CARDIAC DISORDER [None]
  - CHILLS [None]
  - DEHYDRATION [None]
  - PYREXIA [None]
